FAERS Safety Report 6486205-7 (Version None)
Quarter: 2009Q4

REPORT INFORMATION
  Report Type: 
  Country: None (occurrence: None)
  Receive Date: 20091207
  Receipt Date: 20091124
  Transmission Date: 20100525
  Serious: Yes (Hospitalization)
  Sender: FDA-Public Use
  Company Number: 08-002059

PATIENT
  Age: 66 Year
  Sex: Female
  Weight: 70.3 kg

DRUGS (5)
  1. FEMRING [Suspect]
     Indication: BLADDER DISORDER
     Dosage: 0.05 MG, QD, VAGINAL
     Route: 067
     Dates: start: 20040101
  2. FEMRING [Suspect]
     Indication: MENOPAUSAL SYMPTOMS
     Dosage: 0.05 MG, QD, VAGINAL
     Route: 067
     Dates: start: 20040101
  3. UNKNOWN MEDICATION () [Suspect]
     Indication: ARTHRITIS
     Dosage: ORAL
     Route: 048
     Dates: end: 20091101
  4. LISINOPRIL [Concomitant]
  5. UNKNOWN MEDICATION [Concomitant]

REACTIONS (8)
  - COMPLICATION OF DEVICE REMOVAL [None]
  - DRUG INEFFECTIVE [None]
  - GASTRIC HAEMORRHAGE [None]
  - RECTAL HAEMORRHAGE [None]
  - VULVOVAGINAL BURNING SENSATION [None]
  - VULVOVAGINAL DRYNESS [None]
  - VULVOVAGINAL MYCOTIC INFECTION [None]
  - VULVOVAGINAL PAIN [None]
